FAERS Safety Report 11349431 (Version 1)
Quarter: 2015Q3

REPORT INFORMATION
  Report Type: Spontaneous
  Country: US (occurrence: None)
  Receive Date: 20150805
  Receipt Date: 20150805
  Transmission Date: 20151125
  Serious: No
  Sender: FDA-Public Use
  Company Number: None

PATIENT
  Age: 66 Year
  Sex: Male

DRUGS (17)
  1. HEPARIN [Concomitant]
     Active Substance: HEPARIN SODIUM
  2. LIDOCAINE. [Concomitant]
     Active Substance: LIDOCAINE
  3. ACETAMINOPHEN. [Concomitant]
     Active Substance: ACETAMINOPHEN
  4. CALCIUM ACETATE. [Concomitant]
     Active Substance: CALCIUM ACETATE
  5. MULTIVITAMIN [Concomitant]
     Active Substance: VITAMINS
  6. PREGABALIN. [Concomitant]
     Active Substance: PREGABALIN
  7. OXYCODONE [Concomitant]
     Active Substance: OXYCODONE
  8. POLYETHYLENE GLYCOL [Concomitant]
     Active Substance: POLYETHYLENE GLYCOLS
  9. PRASUGREL [Concomitant]
     Active Substance: PRASUGREL
  10. SENNA [Concomitant]
     Active Substance: SENNA LEAF\SENNOSIDES\SENNOSIDES A AND B
  11. BUMETANIDE. [Concomitant]
     Active Substance: BUMETANIDE
  12. CARVEDILOL DOCUSATE [Concomitant]
  13. FENOFIBRATE. [Concomitant]
     Active Substance: FENOFIBRATE
  14. SIMVASTATIN. [Concomitant]
     Active Substance: SIMVASTATIN
  15. OXYCODONE [Suspect]
     Active Substance: OXYCODONE
     Indication: PAIN
     Route: 048
     Dates: start: 20141209, end: 20141210
  16. HYDROMORPHONE [Concomitant]
     Active Substance: HYDROMORPHONE
  17. INSULIN [Concomitant]
     Active Substance: INSULIN NOS

REACTIONS (4)
  - Oxygen saturation decreased [None]
  - Somnolence [None]
  - Lethargy [None]
  - Apnoea [None]

NARRATIVE: CASE EVENT DATE: 20141210
